FAERS Safety Report 21317509 (Version 1)
Quarter: 2022Q3

REPORT INFORMATION
  Report Type: Spontaneous
  Country: US (occurrence: US)
  Receive Date: 20220911
  Receipt Date: 20220911
  Transmission Date: 20221027
  Serious: No
  Sender: FDA-Public Use
  Company Number: US-SA-SAC20220824000896

PATIENT
  Sex: Female

DRUGS (20)
  1. DUPIXENT [Suspect]
     Active Substance: DUPILUMAB
     Indication: Dermatitis atopic
     Dosage: 300 MG, QOW
     Route: 058
     Dates: start: 20211012
  2. BENLYSTA [Concomitant]
     Active Substance: BELIMUMAB
  3. CELECOXIB [Concomitant]
     Active Substance: CELECOXIB
  4. CEVIMELINE [Concomitant]
     Active Substance: CEVIMELINE
  5. CLOBETASOL [Concomitant]
     Active Substance: CLOBETASOL
     Dosage: SOL 0.05%
  6. CLONAZEPAM [Concomitant]
     Active Substance: CLONAZEPAM
  7. DULOXETINE [Concomitant]
     Active Substance: DULOXETINE
  8. ELETRIPTAN [Concomitant]
     Active Substance: ELETRIPTAN
  9. EMGALITY [Concomitant]
     Active Substance: GALCANEZUMAB-GNLM
     Dosage: 120MG/ML
  10. FLUOCINONIDE [Concomitant]
     Active Substance: FLUOCINONIDE
     Dosage: SOL 0.05%
  11. GABAPENTIN [Concomitant]
     Active Substance: GABAPENTIN
  12. LANSOPRAZOLE [Concomitant]
     Active Substance: LANSOPRAZOLE
  13. MONTELUKAST [Concomitant]
     Active Substance: MONTELUKAST SODIUM
  14. NURTEC ODT [Concomitant]
     Active Substance: RIMEGEPANT SULFATE
  15. PREDNISONE [Concomitant]
     Active Substance: PREDNISONE
  16. TOPIRAMATE [Concomitant]
     Active Substance: TOPIRAMATE
  17. VYVANSE [Concomitant]
     Active Substance: LISDEXAMFETAMINE DIMESYLATE
  18. LEVOTHYROXINE [Concomitant]
     Active Substance: LEVOTHYROXINE
  19. METHYLPREDNISOLONE [Concomitant]
     Active Substance: METHYLPREDNISOLONE
  20. HYDROXYCHLOROQUINE SULFATE [Concomitant]
     Active Substance: HYDROXYCHLOROQUINE SULFATE
     Dosage: UNK

REACTIONS (2)
  - Stress [Unknown]
  - Dermatitis atopic [Unknown]
